FAERS Safety Report 17998476 (Version 3)
Quarter: 2020Q3

REPORT INFORMATION
  Report Type: Spontaneous
  Country: PL (occurrence: PL)
  Receive Date: 20200709
  Receipt Date: 20200810
  Transmission Date: 20201103
  Serious: Yes (Other)
  Sender: FDA-Public Use
  Company Number: PL-ACCORD-188821

PATIENT
  Age: 42 Year
  Sex: Female
  Weight: 63 kg

DRUGS (4)
  1. TACROLIMUS. [Concomitant]
     Active Substance: TACROLIMUS
     Indication: IMMUNOSUPPRESSION
     Dosage: MODIFIED RELEASE (MR)
     Dates: start: 201812, end: 2019
  2. ANTITHYMOCYTE IMMUNOGLOBULIN [Concomitant]
     Active Substance: THYMOCYTE IMMUNE GLOBULIN NOS
     Indication: IMMUNOSUPPRESSION
     Dosage: INDUCTION
     Dates: start: 201712
  3. PREDNISONE. [Concomitant]
     Active Substance: PREDNISONE
     Indication: IMMUNOSUPPRESSION
  4. MYCOPHENOLIC ACID. [Suspect]
     Active Substance: MYCOPHENOLIC ACID
     Indication: IMMUNOSUPPRESSION
     Dates: start: 201712, end: 201808

REACTIONS (5)
  - Parvovirus B19 infection [Recovered/Resolved]
  - Epstein-Barr virus infection [Recovering/Resolving]
  - Normocytic anaemia [Recovering/Resolving]
  - Cytomegalovirus infection [Recovering/Resolving]
  - Erythropoiesis abnormal [Recovering/Resolving]

NARRATIVE: CASE EVENT DATE: 201808
